FAERS Safety Report 20080492 (Version 1)
Quarter: 2021Q4

REPORT INFORMATION
  Report Type: Spontaneous
  Country: US (occurrence: US)
  Receive Date: 20211117
  Receipt Date: 20211117
  Transmission Date: 20220303
  Serious: Yes (Other)
  Sender: FDA-Public Use
  Company Number: US-GLAXOSMITHKLINE-US2021GSK236945

PATIENT
  Sex: Male

DRUGS (15)
  1. ZANTAC [Suspect]
     Active Substance: RANITIDINE HYDROCHLORIDE
     Dosage: 150 MG BOTH
     Dates: start: 198801, end: 201912
  2. ZANTAC [Suspect]
     Active Substance: RANITIDINE HYDROCHLORIDE
     Dosage: 300 MG, WE
     Dates: start: 198801, end: 201912
  3. ZANTAC [Suspect]
     Active Substance: RANITIDINE HYDROCHLORIDE
     Dosage: UNK
  4. ZANTAC [Suspect]
     Active Substance: RANITIDINE HYDROCHLORIDE
     Dosage: 150 MG BOTH
     Dates: start: 198801, end: 201912
  5. ZANTAC [Suspect]
     Active Substance: RANITIDINE HYDROCHLORIDE
     Dosage: 300 MG, WE
     Dates: start: 198801, end: 201912
  6. ZANTAC [Suspect]
     Active Substance: RANITIDINE HYDROCHLORIDE
     Dosage: UNK
  7. ZANTAC [Suspect]
     Active Substance: RANITIDINE HYDROCHLORIDE
     Dosage: 150 MG BOTH
     Dates: start: 198801, end: 201912
  8. ZANTAC [Suspect]
     Active Substance: RANITIDINE HYDROCHLORIDE
     Dosage: 300 MG, WE
     Dates: start: 198801, end: 201912
  9. ZANTAC [Suspect]
     Active Substance: RANITIDINE HYDROCHLORIDE
     Dosage: UNK
  10. RANITIDINE [Suspect]
     Active Substance: RANITIDINE
     Dosage: 150 MG BOTH
     Dates: start: 198801, end: 201912
  11. RANITIDINE [Suspect]
     Active Substance: RANITIDINE
     Dosage: 150 MG OVER THE COUNTER
     Dates: start: 198801, end: 201912
  12. RANITIDINE [Suspect]
     Active Substance: RANITIDINE
     Dosage: 300 MG, WE
     Dates: start: 198801, end: 201912
  13. RANITIDINE [Suspect]
     Active Substance: RANITIDINE
     Dosage: 150 MG OVER THE COUNTER
     Dates: start: 198801, end: 201912
  14. RANITIDINE [Suspect]
     Active Substance: RANITIDINE
     Dosage: 300 MG, WE
     Dates: start: 198801, end: 201912
  15. RANITIDINE [Suspect]
     Active Substance: RANITIDINE
     Dosage: UNK

REACTIONS (1)
  - Prostate cancer [Unknown]
